FAERS Safety Report 15869364 (Version 4)
Quarter: 2020Q1

REPORT INFORMATION
  Report Type: Report from Study
  Country: US (occurrence: US)
  Receive Date: 20190125
  Receipt Date: 20200310
  Transmission Date: 20200409
  Serious: Yes (Hospitalization)
  Sender: FDA-Public Use
  Company Number: US-ACTELION-A-NJ2016-146260

PATIENT
  Age: 70 Year
  Sex: Female
  Weight: 98.87 kg

DRUGS (3)
  1. REMODULIN [Suspect]
     Active Substance: TREPROSTINIL
     Indication: PRODUCT USED FOR UNKNOWN INDICATION
     Dosage: 79 NG/KG, PER MIN
     Route: 065
  2. POTASSIUM [Concomitant]
     Active Substance: POTASSIUM
  3. OPSUMIT [Suspect]
     Active Substance: MACITENTAN
     Indication: PULMONARY HYPERTENSION
     Dosage: 10 MG, QD
     Route: 048
     Dates: start: 20160720

REACTIONS (21)
  - Catheter site related reaction [Unknown]
  - Catheter site infection [Unknown]
  - Catheter site haemorrhage [Unknown]
  - Catheter site warmth [Unknown]
  - Myocardial infarction [Unknown]
  - Influenza [Unknown]
  - Catheter site nodule [Unknown]
  - Pneumonia [Unknown]
  - Injection site pain [Unknown]
  - Fluid retention [Unknown]
  - Catheter site erosion [Unknown]
  - Catheter site discolouration [Unknown]
  - Walking distance test abnormal [Unknown]
  - Catheter site pain [Unknown]
  - Pyrexia [Unknown]
  - Application site pruritus [Unknown]
  - Hyperhidrosis [Unknown]
  - Rash pruritic [Unknown]
  - Emotional disorder [Unknown]
  - Catheter site swelling [Unknown]
  - Catheter site erythema [Unknown]

NARRATIVE: CASE EVENT DATE: 201802
